FAERS Safety Report 7289471-3 (Version None)
Quarter: 2011Q1

REPORT INFORMATION
  Report Type: 
  Country: None (occurrence: None)
  Receive Date: 20110211
  Receipt Date: 20110207
  Transmission Date: 20110831
  Serious: Yes (Hospitalization)
  Sender: FDA-Public Use
  Company Number: US-RB-021946-11

PATIENT
  Sex: Male

DRUGS (4)
  1. SUBOXONE [Suspect]
     Indication: DRUG DEPENDENCE
     Dosage: TAKING INTERCHANGEABLY WITH SUBOXONE TABLETS.
     Route: 060
     Dates: start: 20110201
  2. JANUVIA [Concomitant]
     Indication: DIABETES MELLITUS
     Route: 048
  3. SUBOXONE [Suspect]
     Indication: DRUG DEPENDENCE
     Route: 060
     Dates: start: 20050101
  4. LOTRIL [Concomitant]
     Indication: HYPERTENSION
     Dosage: TAKES 5 -10 MG DAILY.
     Route: 048

REACTIONS (3)
  - INTENTIONAL DRUG MISUSE [None]
  - PROSTATE CANCER [None]
  - MYOCARDIAL INFARCTION [None]
